FAERS Safety Report 9536730 (Version 1)
Quarter: 2013Q3

REPORT INFORMATION
  Report Type: Spontaneous
  Country: US (occurrence: None)
  Receive Date: 20130918
  Receipt Date: 20130918
  Transmission Date: 20140515
  Serious: Yes (Hospitalization)
  Sender: FDA-Public Use
  Company Number: None

PATIENT
  Age: 69 Year
  Sex: Male
  Weight: 111.1 kg

DRUGS (1)
  1. ADENOSINE [Suspect]
     Dates: start: 20130703, end: 20130703

REACTIONS (3)
  - Bradycardia [None]
  - Atrial fibrillation [None]
  - Atrioventricular block [None]
